FAERS Safety Report 10654717 (Version 2)
Quarter: 2014Q4

REPORT INFORMATION
  Report Type: Report from Study
  Country: JP (occurrence: JP)
  Receive Date: 20141216
  Receipt Date: 20141216
  Transmission Date: 20150529
  Serious: Yes (Hospitalization, Other)
  Sender: FDA-Public Use
  Company Number: JP-ASTRAZENECA-2013SE10757

PATIENT
  Age: 61 Year
  Sex: Male

DRUGS (31)
  1. BAYASPIRIN [Concomitant]
     Active Substance: ASPIRIN
     Dosage: 100 MG 1/DAY; NUMBER OF SEPARATE DOSAGES UNKNOWN
     Route: 065
     Dates: start: 20110921
  2. NU-LOTAN [Concomitant]
     Active Substance: LOSARTAN POTASSIUM
     Indication: HYPERTENSION
     Dosage: 25 MG 1/DAY; NUMBER OF SEPARATE DOSAGES UNKNOWN
     Route: 065
     Dates: start: 20111026, end: 20131113
  3. KINEDAK [Concomitant]
     Active Substance: EPALRESTAT
     Dosage: 100 MH 1/DAY; NUMBER OF SEPARATE DOSAGES UNKNOWN
     Route: 065
     Dates: start: 20090819, end: 20140513
  4. GASTER [Concomitant]
     Active Substance: FAMOTIDINE
     Dosage: 20 MG 1/DAY; NUMBER OF SEPARATE DOSAGES UNKNOWN
     Route: 065
     Dates: start: 20110615, end: 20110628
  5. LOSARTAN POTASSIUM. [Concomitant]
     Active Substance: LOSARTAN POTASSIUM
     Indication: HYPERTENSION
     Dosage: 25 MG 1/DAY; NUMBER OF SEPARATE DOSAGES UNKNOWN
     Route: 048
     Dates: start: 20140305
  6. AMLODIN [Concomitant]
     Active Substance: AMLODIPINE BESYLATE
     Indication: HYPERTENSION
     Dosage: 2.5 MG 1/DAY; NUMBER OF SEPARATE DOSAGES UNKNOWN
     Route: 065
     Dates: start: 20140816
  7. METFORMIN [Concomitant]
     Active Substance: METFORMIN HYDROCHLORIDE
     Indication: DIABETES MELLITUS
     Dosage: 1000 MG 1/DAYNUMBER OF SEPARATE DOSAGES UNKNOWN
     Route: 065
     Dates: start: 20110518, end: 20110615
  8. COVERSYL [Concomitant]
     Active Substance: PERINDOPRIL
     Indication: HYPERTENSION
     Dosage: 2 MG 1/DAY; NUMBER OF SEPARATE DOSAGES UNKNOWN
     Route: 065
     Dates: start: 20110316, end: 20111026
  9. LANTUS [Concomitant]
     Active Substance: INSULIN GLARGINE
     Indication: DIABETES MELLITUS
     Dosage: 10 IU 1/DAY; NUMBER OF SEPARATE DOSAGES UNKNOWN
     Route: 065
     Dates: start: 20120229, end: 20120507
  10. VICTOZA [Concomitant]
     Active Substance: LIRAGLUTIDE
     Indication: DIABETES MELLITUS
     Dosage: 0.6 MG 1/DAY; NUMBER OF SEPARATE DOSAGES UNKNOWN
     Route: 065
     Dates: start: 20130515
  11. EPALRESTAT [Concomitant]
     Active Substance: EPALRESTAT
     Dosage: 100 MH 1/DAY; NUMBER OF SEPARATE DOSAGES UNKNOWN
     Route: 065
     Dates: start: 20140514
  12. LANTUS [Concomitant]
     Active Substance: INSULIN GLARGINE
     Indication: DIABETES MELLITUS
     Dosage: 12 IU 1/DAY; NUMBER OF SEPARATE DOSAGES UNKNOWN
     Route: 065
     Dates: start: 20120518, end: 20130423
  13. MOHRUS TAPE [Concomitant]
     Active Substance: KETOPROFEN
     Dosage: OPTIMAL DOSE
     Route: 062
     Dates: start: 20121010, end: 20121024
  14. VIAGRA [Concomitant]
     Active Substance: SILDENAFIL CITRATE
     Dosage: AS REQUIRED
     Route: 065
     Dates: start: 20121212
  15. ADONA [Concomitant]
     Active Substance: CARBAZOCHROME SODIUM SULFONATE
     Dosage: 30 MG 1/DAY; NUMBER OF SEPARATE DOSAGES UNKNOWN
     Route: 065
     Dates: start: 20130821
  16. CRESTOR [Suspect]
     Active Substance: ROSUVASTATIN CALCIUM
     Indication: HYPERCHOLESTEROLAEMIA
     Dosage: 5 MG 1/DAY; NUMBER OF SEPARATE DOSAGES UNKNOWN
     Route: 048
     Dates: start: 20110518
  17. TAKEPRON [Concomitant]
     Active Substance: LANSOPRAZOLE
     Dosage: 15 MG 1/DAY; NUMBER OF SEPARATE DOSAGES UNKNOWN
     Route: 065
     Dates: start: 20110928
  18. AMARYL [Concomitant]
     Active Substance: GLIMEPIRIDE
     Indication: DIABETES MELLITUS
     Dosage: 2 MG 1/DAY; NUMBER OF SEPARATE DOSAGES UNKNOWN
     Route: 065
     Dates: start: 20110518, end: 20120207
  19. METGLUCO [Concomitant]
     Active Substance: METFORMIN HYDROCHLORIDE
     Indication: DIABETES MELLITUS
     Dosage: 1000 MG 1/DAY; NUMBER OF SEPARATE DOSAGES UNKNOWN
     Route: 065
     Dates: start: 20110615, end: 20141003
  20. MAINTATE [Concomitant]
     Active Substance: BISOPROLOL FUMARATE
     Indication: HYPERTENSION
     Dosage: .625 MG 1/DAY; NUMBER OF SEPARATE DOSAGES UNKNOWN
     Route: 065
     Dates: start: 20130604
  21. NU-LOTAN [Concomitant]
     Active Substance: LOSARTAN POTASSIUM
     Indication: HYPERTENSION
     Dosage: 25 MGH 1/DAY; NUMBER OF SEPARATE DOSAGES UNKNOWN
     Route: 065
     Dates: start: 20131211, end: 20140304
  22. CELECOX [Concomitant]
     Active Substance: CELECOXIB
     Dosage: 400 MG 1/DAY; NUMBER OF SEPARATE DOSAGES UNKNOWN
     Route: 065
     Dates: start: 20121010, end: 20121024
  23. EPADEL [Concomitant]
     Active Substance: ICOSAPENT
     Indication: HYPERCHOLESTEROLAEMIA
     Dosage: 2700 MG 1/DAY; NUMBER OF SEPARATE DOSAGES UNKNOWN
     Route: 065
     Dates: start: 20130821
  24. LANTUS [Concomitant]
     Active Substance: INSULIN GLARGINE
     Indication: DIABETES MELLITUS
     Dosage: 14 IU 1/DAY; NUMBER OF SEPARATE DOSAGES UNKNOWN
     Route: 065
     Dates: start: 20130424
  25. OLMETEC [Concomitant]
     Active Substance: OLMESARTAN MEDOXOMIL
     Indication: HYPERTENSION
     Dosage: 20 MG 1/DAY; NUMBER OF SEPARATE DOSAGES UNKNOWN
     Route: 065
     Dates: start: 20131114, end: 20131210
  26. GASTER [Concomitant]
     Active Substance: FAMOTIDINE
     Dosage: 20 MG 1/DAY; NUMBER OF SEPARATE DOSAGES UNKNOWN
     Route: 065
     Dates: start: 20110921, end: 20110928
  27. LANTUS [Concomitant]
     Active Substance: INSULIN GLARGINE
     Indication: DIABETES MELLITUS
     Dosage: 14 IU 1/DAY; NUMBER OF SEPARATE DOSAGES UNKNOWN
     Route: 065
     Dates: start: 20100116, end: 20120208
  28. AMARYL [Concomitant]
     Active Substance: GLIMEPIRIDE
     Indication: DIABETES MELLITUS
     Dosage: 2 MG 1/DAY; NUMBER OF SEPARATE DOSAGES UNKNOWN
     Route: 065
     Dates: start: 20120508, end: 20120709
  29. VICTOZA [Concomitant]
     Active Substance: LIRAGLUTIDE
     Indication: DIABETES MELLITUS
     Dosage: 0.3 MG 1/DAY; NUMBER OF SEPARATE DOSAGES UNKNOWN
     Route: 065
     Dates: start: 20120208, end: 20130514
  30. METGLUCO [Concomitant]
     Active Substance: METFORMIN HYDROCHLORIDE
     Indication: DIABETES MELLITUS
     Dosage: 1000 MG 1/DAY; NUMBER OF SEPARATE DOSAGES UNKNOWN
     Route: 065
     Dates: start: 20141010
  31. GENTACIN [Concomitant]
     Active Substance: GENTAMICIN SULFATE
     Dosage: AS REQUIRED
     Route: 062
     Dates: start: 20130821

REACTIONS (4)
  - Abdominal distension [Recovering/Resolving]
  - Nipple pain [Recovering/Resolving]
  - Cerebral infarction [Recovering/Resolving]
  - Cardiac failure [Unknown]

NARRATIVE: CASE EVENT DATE: 20110615
